FAERS Safety Report 8259895-6 (Version None)
Quarter: 2012Q2

REPORT INFORMATION
  Report Type: 
  Country: None (occurrence: None)
  Receive Date: 20120404
  Receipt Date: 20120329
  Transmission Date: 20120825
  Serious: Yes (Other)
  Sender: FDA-Public Use
  Company Number: HR-GLAXOSMITHKLINE-B0792920A

PATIENT
  Age: 3 Year
  Sex: Female

DRUGS (1)
  1. CEFUROXIME [Suspect]
     Indication: RESPIRATORY TRACT INFECTION
     Dates: start: 20120125

REACTIONS (10)
  - BLISTER [None]
  - RESTLESSNESS [None]
  - SUFFOCATION FEELING [None]
  - DARK CIRCLES UNDER EYES [None]
  - OROPHARYNGEAL BLISTERING [None]
  - COUGH [None]
  - PRURITUS GENITAL [None]
  - HICCUPS [None]
  - GENITAL RASH [None]
  - ERUCTATION [None]
